FAERS Safety Report 4491101-0 (Version None)
Quarter: 2004Q4

REPORT INFORMATION
  Report Type: 
  Country: None (occurrence: None)
  Receive Date: 20041102
  Receipt Date: 20041026
  Transmission Date: 20050328
  Serious: Yes (Life-Threatening, Hospitalization)
  Sender: FDA-Public Use
  Company Number: US-MERCK-0410USA03942

PATIENT
  Age: 72 Year
  Sex: Male

DRUGS (5)
  1. VIOXX [Suspect]
     Indication: NECK INJURY
     Route: 048
     Dates: start: 20030101
  2. VIOXX [Suspect]
     Indication: JOINT INJURY
     Route: 048
     Dates: start: 20000101
  3. VIOXX [Suspect]
     Route: 048
     Dates: start: 20030101
  4. CRESTOR [Concomitant]
     Route: 065
  5. VIOXX [Suspect]
     Route: 048
     Dates: start: 20000101

REACTIONS (2)
  - ADVERSE EVENT [None]
  - MYOCARDIAL INFARCTION [None]
